FAERS Safety Report 16872133 (Version 1)
Quarter: 2019Q4

REPORT INFORMATION
  Report Type: Spontaneous
  Country: US (occurrence: US)
  Receive Date: 20191001
  Receipt Date: 20191001
  Transmission Date: 20200122
  Serious: No
  Sender: FDA-Public Use
  Company Number: None

PATIENT
  Age: 14 Year
  Sex: Male
  Weight: 52.65 kg

DRUGS (2)
  1. RYCLORA [Suspect]
     Active Substance: DEXCHLORPHENIRAMINE MALEATE
     Indication: SEASONAL ALLERGY
     Route: 048
  2. RYCLORA [Suspect]
     Active Substance: DEXCHLORPHENIRAMINE MALEATE
     Indication: RHINITIS PERENNIAL
     Route: 048

REACTIONS (1)
  - Disturbance in attention [None]

NARRATIVE: CASE EVENT DATE: 20190607
